FAERS Safety Report 20805559 (Version 1)
Quarter: 2022Q2

REPORT INFORMATION
  Report Type: Spontaneous
  Country: ES (occurrence: ES)
  Receive Date: 20220510
  Receipt Date: 20220510
  Transmission Date: 20220721
  Serious: Yes (Other)
  Sender: FDA-Public Use
  Company Number: ES-Eisai Europe Ltd-EC-2022-109732

PATIENT
  Age: 19 Year
  Sex: Female

DRUGS (7)
  1. LEVETIRACETAM [Suspect]
     Active Substance: LEVETIRACETAM
     Indication: Partial seizures
     Dosage: 100 MILLIGRAM, ONCE A DAY
     Route: 065
     Dates: end: 2019
  2. LEVETIRACETAM [Suspect]
     Active Substance: LEVETIRACETAM
     Dosage: 500 MILLIGRAM, ONCE A DAY
     Route: 065
     Dates: start: 2019, end: 2020
  3. FYCOMPA [Suspect]
     Active Substance: PERAMPANEL
     Indication: Partial seizures
     Dosage: UP-TITRATION (DOSE AND FREQUENCY UNKNOWN)
     Route: 048
     Dates: start: 2019, end: 2019
  4. FYCOMPA [Suspect]
     Active Substance: PERAMPANEL
     Dosage: DOSE AND FREQUENCY UNKNOWN
     Route: 048
     Dates: start: 2019, end: 2019
  5. FYCOMPA [Suspect]
     Active Substance: PERAMPANEL
     Dosage: 4 MILLIGRAM, ONCE A DAY
     Route: 048
     Dates: start: 2019, end: 2020
  6. FYCOMPA [Suspect]
     Active Substance: PERAMPANEL
     Dosage: 6 MILLIGRAM, ONCE A DAY
     Route: 048
     Dates: start: 2020
  7. ESLICARBAZEPINE ACETATE [Concomitant]
     Active Substance: ESLICARBAZEPINE ACETATE
     Indication: Partial seizures
     Dosage: 800 MILLIGRAM, ONCE A DAY
     Route: 065

REACTIONS (3)
  - Intentional self-injury [Recovered/Resolved]
  - Impulse-control disorder [Recovered/Resolved]
  - Agitation [Recovered/Resolved]

NARRATIVE: CASE EVENT DATE: 20190101
